FAERS Safety Report 15464160 (Version 2)
Quarter: 2019Q4

REPORT INFORMATION
  Report Type: Spontaneous
  Country: GB (occurrence: GB)
  Receive Date: 20181004
  Receipt Date: 20191224
  Transmission Date: 20200122
  Serious: Yes (Life-Threatening, Other)
  Sender: FDA-Public Use
  Company Number: GB-ELI_LILLY_AND_COMPANY-GB201404005918

PATIENT
  Age: 23 Year
  Sex: Male
  Weight: 89 kg

DRUGS (7)
  1. OLANZAPINE. [Suspect]
     Active Substance: OLANZAPINE
     Indication: SLEEP DISORDER
     Dosage: UNK UNK, UNKNOWN
     Route: 065
  2. PREGABALIN. [Interacting]
     Active Substance: PREGABALIN
     Dosage: UNK, UNKNOWN
     Route: 065
  3. PROPRANOLOL HYDROCHLORIDE. [Interacting]
     Active Substance: PROPRANOLOL HYDROCHLORIDE
     Indication: PRODUCT USED FOR UNKNOWN INDICATION
     Dosage: UNK UNK, UNKNOWN
     Route: 065
  4. PREGABALIN. [Interacting]
     Active Substance: PREGABALIN
     Indication: ANXIETY DISORDER
     Dosage: 600 MG, QD
     Route: 048
     Dates: start: 20131201
  5. SERTRALINE [Concomitant]
     Active Substance: SERTRALINE HYDROCHLORIDE
     Indication: PRODUCT USED FOR UNKNOWN INDICATION
     Dosage: UNK UNK, UNKNOWN
     Route: 065
  6. PREGABALIN. [Interacting]
     Active Substance: PREGABALIN
     Dosage: 300 MG, DAILY
     Route: 048
     Dates: start: 20131201
  7. CLONAZEPAM. [Interacting]
     Active Substance: CLONAZEPAM
     Indication: ANXIETY
     Dosage: UNK UNK, UNKNOWN: RARELY USED
     Route: 065

REACTIONS (18)
  - Speech disorder [Not Recovered/Not Resolved]
  - Dyspnoea [Recovering/Resolving]
  - Abdominal pain [Recovering/Resolving]
  - Depressed level of consciousness [Recovering/Resolving]
  - Amnesia [Recovering/Resolving]
  - Photosensitivity reaction [Recovering/Resolving]
  - Memory impairment [Not Recovered/Not Resolved]
  - Disturbance in attention [Recovering/Resolving]
  - Sleep apnoea syndrome [Recovering/Resolving]
  - Asthenia [Recovering/Resolving]
  - Fluid retention [Recovering/Resolving]
  - Paraesthesia [Recovering/Resolving]
  - Quality of life decreased [Recovering/Resolving]
  - Chest discomfort [Recovering/Resolving]
  - Angioedema [Recovered/Resolved]
  - Drug interaction [Recovering/Resolving]
  - Oedema [Recovering/Resolving]
  - Medication error [Recovering/Resolving]

NARRATIVE: CASE EVENT DATE: 20131201
